FAERS Safety Report 21387418 (Version 1)
Quarter: 2022Q3

REPORT INFORMATION
  Report Type: Spontaneous
  Country: US (occurrence: None)
  Receive Date: 20220926
  Receipt Date: 20220926
  Transmission Date: 20221026
  Serious: No
  Sender: FDA-Public Use
  Company Number: None

PATIENT
  Age: 75 Year
  Sex: Female
  Weight: 53.71 kg

DRUGS (13)
  1. PIQRAY [Suspect]
     Active Substance: ALPELISIB
     Indication: Breast cancer female
     Dosage: FREQUENCY : DAILY;?
     Route: 048
  2. ACETAMINOPHEN\CODEINE PHOSPHATE [Concomitant]
     Active Substance: ACETAMINOPHEN\CODEINE PHOSPHATE
  3. AMOXICILLIN [Concomitant]
     Active Substance: AMOXICILLIN
  4. ASPIRIN [Concomitant]
     Active Substance: ASPIRIN
  5. VITAMIN B COMPLEX [Concomitant]
     Active Substance: CYANOCOBALAMIN\DEXPANTHENOL\NIACINAMIDE\PYRIDOXINE HYDROCHLORIDE\RIBOFLAVIN 5^-PHOSPHATE SODIUM\THIA
  6. CALCIUM CARB-CHOLECALCIFEROL [Concomitant]
  7. CAPECITABINE [Concomitant]
     Active Substance: CAPECITABINE
  8. GABAPENTIN [Concomitant]
     Active Substance: GABAPENTIN
  9. LISINOPRIL [Concomitant]
     Active Substance: LISINOPRIL
  10. MEGESTROL [Concomitant]
     Active Substance: MEGESTROL
  11. VITAMINS [Concomitant]
     Active Substance: VITAMINS
  12. ONDANSETRON [Concomitant]
     Active Substance: ONDANSETRON
  13. VITAMIN D3 [Concomitant]
     Active Substance: CHOLECALCIFEROL

REACTIONS (1)
  - Hospice care [None]
